FAERS Safety Report 12105407 (Version 2)
Quarter: 2016Q2

REPORT INFORMATION
  Report Type: Spontaneous
  Country: RU (occurrence: RU)
  Receive Date: 20160223
  Receipt Date: 20160427
  Transmission Date: 20160815
  Serious: Yes (Other)
  Sender: FDA-Public Use
  Company Number: RU-BAYER-2016-029030

PATIENT
  Age: 40 Year
  Sex: Female

DRUGS (1)
  1. YAZ [Suspect]
     Active Substance: DROSPIRENONE\ETHINYL ESTRADIOL
     Indication: PREMENSTRUAL SYNDROME
     Dosage: UNK
     Dates: end: 2014

REACTIONS (4)
  - Transient ischaemic attack [Recovered/Resolved]
  - Hemiplegia [Recovered/Resolved]
  - Abdominal hernia [None]
  - Off label use [None]

NARRATIVE: CASE EVENT DATE: 2014
